FAERS Safety Report 5624699-7 (Version None)
Quarter: 2008Q1

REPORT INFORMATION
  Report Type: 
  Country: None (occurrence: None)
  Receive Date: 20080213
  Receipt Date: 20080211
  Transmission Date: 20080703
  Serious: Yes (Disabling, Other)
  Sender: FDA-Public Use
  Company Number: B0506559A

PATIENT
  Age: 55 Year
  Sex: Male

DRUGS (1)
  1. DILATREND [Suspect]
     Indication: PROPHYLAXIS
     Dosage: 12.5MG PER DAY
     Route: 048
     Dates: start: 20050215, end: 20071015

REACTIONS (2)
  - DIZZINESS [None]
  - MACULAR DEGENERATION [None]
